FAERS Safety Report 24022859 (Version 2)
Quarter: 2024Q2

REPORT INFORMATION
  Report Type: Report from Study
  Country: US (occurrence: US)
  Receive Date: 20240627
  Receipt Date: 20240628
  Transmission Date: 20240716
  Serious: No
  Sender: FDA-Public Use
  Company Number: US-ROCHE-3372916

PATIENT
  Age: 79 Year
  Sex: Female
  Weight: 63.5 kg

DRUGS (9)
  1. ALECENSA [Suspect]
     Active Substance: ALECTINIB HYDROCHLORIDE
     Indication: Lung neoplasm malignant
     Route: 048
     Dates: start: 20230105
  2. MAGNESIUM [Concomitant]
     Active Substance: MAGNESIUM
  3. FISH OIL [Concomitant]
     Active Substance: FISH OIL
  4. ASCORBIC ACID [Concomitant]
     Active Substance: ASCORBIC ACID
  5. METHYLPREDNISOLONE [Concomitant]
     Active Substance: METHYLPREDNISOLONE
  6. DEXAMETHASONE [Concomitant]
     Active Substance: DEXAMETHASONE
  7. CARAFATE [Concomitant]
     Active Substance: SUCRALFATE
  8. BENZONATATE [Concomitant]
     Active Substance: BENZONATATE
  9. PROMETHAZINE [Concomitant]
     Active Substance: PROMETHAZINE HYDROCHLORIDE

REACTIONS (8)
  - Pituitary tumour benign [Unknown]
  - Myalgia [Unknown]
  - White blood cell count decreased [Unknown]
  - Red blood cell count decreased [Unknown]
  - Blood glucose increased [Unknown]
  - Blood calcium decreased [Unknown]
  - Aspartate aminotransferase increased [Unknown]
  - Peripheral swelling [Unknown]
